FAERS Safety Report 9438398 (Version 1)
Quarter: 2013Q3

REPORT INFORMATION
  Report Type: Spontaneous
  Country: US (occurrence: US)
  Receive Date: 20130802
  Receipt Date: 20130802
  Transmission Date: 20140515
  Serious: Yes (Other)
  Sender: FDA-Public Use
  Company Number: US-BRISTOL-MYERS SQUIBB COMPANY-17231432

PATIENT
  Sex: Male

DRUGS (2)
  1. COUMADIN [Suspect]
  2. CELECOXIB [Suspect]

REACTIONS (1)
  - Gastrointestinal haemorrhage [Unknown]
